FAERS Safety Report 6012700-0 (Version None)
Quarter: 2008Q4

REPORT INFORMATION
  Report Type: 
  Country: None (occurrence: None)
  Receive Date: 20081218
  Receipt Date: 20081209
  Transmission Date: 20090506
  Serious: Yes (Hospitalization)
  Sender: FDA-Public Use
  Company Number: US-AMGEN-QUU322899

PATIENT
  Age: 13 Year
  Sex: Male

DRUGS (2)
  1. ENBREL [Suspect]
     Indication: DRUG USE FOR UNKNOWN INDICATION
     Route: 058
     Dates: start: 20081001, end: 20081024
  2. ACCUTANE [Concomitant]

REACTIONS (3)
  - DEPRESSION [None]
  - PARANOIA [None]
  - PSYCHOTIC BEHAVIOUR [None]
